FAERS Safety Report 26022390 (Version 1)
Quarter: 2025Q4

REPORT INFORMATION
  Report Type: Spontaneous
  Country: US (occurrence: US)
  Receive Date: 20251110
  Receipt Date: 20251110
  Transmission Date: 20260117
  Serious: No
  Sender: SANOFI AVENTIS
  Company Number: US-SANOFI-02706387

PATIENT
  Age: 79 Year
  Sex: Male

DRUGS (2)
  1. DUPIXENT [Suspect]
     Active Substance: DUPILUMAB
     Dosage: UNK
     Route: 042
     Dates: start: 20251029
  2. ERTAPENEM [Concomitant]
     Active Substance: ERTAPENEM
     Dosage: UNK

REACTIONS (2)
  - Incorrect route of product administration [Unknown]
  - Wrong patient received product [Unknown]

NARRATIVE: CASE EVENT DATE: 20251029
